FAERS Safety Report 6712626-0 (Version None)
Quarter: 2010Q2

REPORT INFORMATION
  Report Type: 
  Country: None (occurrence: None)
  Receive Date: 20100505
  Receipt Date: 20100505
  Transmission Date: 20101027
  Serious: Yes (Other)
  Sender: FDA-Public Use
  Company Number: None

PATIENT
  Age: 58 Year
  Sex: Female
  Weight: 86.1834 kg

DRUGS (2)
  1. ATENOLOL [Suspect]
     Indication: PALPITATIONS
     Dosage: 50 MG 1 A DAY, 1 DOSE
  2. CIPRO [Concomitant]
     Indication: DIVERTICULITIS
     Dosage: 500 MG 2X A DAY ; 1 DOSE

REACTIONS (2)
  - BLOOD PRESSURE INCREASED [None]
  - HEART RATE INCREASED [None]
